FAERS Safety Report 25314421 (Version 1)
Quarter: 2025Q2

REPORT INFORMATION
  Report Type: Spontaneous
  Country: US (occurrence: US)
  Receive Date: 20250514
  Receipt Date: 20250514
  Transmission Date: 20250716
  Serious: Yes (Other)
  Sender: ALEMBIC
  Company Number: US-ALEMBIC PHARMACUETICALS LIMITED-2025SCAL000461

PATIENT

DRUGS (6)
  1. CYCLOPHOSPHAMIDE [Suspect]
     Active Substance: CYCLOPHOSPHAMIDE
     Indication: Plasma cell myeloma refractory
     Route: 065
  2. CYCLOPHOSPHAMIDE [Suspect]
     Active Substance: CYCLOPHOSPHAMIDE
     Route: 065
  3. Immunoglobulin [Concomitant]
     Indication: Plasma cell myeloma
     Route: 042
  4. ANAKINRA [Concomitant]
     Active Substance: ANAKINRA
     Indication: Plasma cell myeloma
     Route: 065
  5. DASATINIB [Concomitant]
     Active Substance: DASATINIB
     Indication: Plasma cell myeloma
     Route: 065
  6. RUXOLITINIB [Concomitant]
     Active Substance: RUXOLITINIB
     Indication: Plasma cell myeloma
     Route: 065

REACTIONS (2)
  - Cytomegalovirus viraemia [Unknown]
  - Diverticulitis [Unknown]
